FAERS Safety Report 19251707 (Version 1)
Quarter: 2021Q2

REPORT INFORMATION
  Report Type: Spontaneous
  Country: BR (occurrence: BR)
  Receive Date: 20210513
  Receipt Date: 20210513
  Transmission Date: 20210717
  Serious: Yes (Other)
  Sender: FDA-Public Use
  Company Number: BR-NOVOPROD-811093

PATIENT
  Age: 72 Year
  Sex: Female
  Weight: 71.5 kg

DRUGS (5)
  1. VALSARTAN. [Concomitant]
     Active Substance: VALSARTAN
     Dosage: 160MG
     Route: 065
  2. DAPAGLIFLOZIN;METFORMIN [Concomitant]
     Active Substance: DAPAGLIFLOZIN PROPANEDIOL\METFORMIN HYDROCHLORIDE
     Dosage: 10 / 1000MG
     Route: 065
  3. ALOGLIPTIN. [Concomitant]
     Active Substance: ALOGLIPTIN
     Dosage: 25 MG
     Route: 065
  4. TRESIBA [Suspect]
     Active Substance: INSULIN DEGLUDEC
     Indication: PRODUCT USED FOR UNKNOWN INDICATION
     Dosage: 7 IU
     Route: 065
  5. ROSUVASTATIN. [Concomitant]
     Active Substance: ROSUVASTATIN
     Dosage: 10MG
     Route: 065

REACTIONS (3)
  - Cardiac failure [Unknown]
  - Acute myocardial infarction [Unknown]
  - Renal impairment [Unknown]

NARRATIVE: CASE EVENT DATE: 201904
